FAERS Safety Report 5091521-X (Version None)
Quarter: 2006Q3

REPORT INFORMATION
  Report Type: 
  Country: None (occurrence: None)
  Receive Date: 20060727
  Receipt Date: 20060508
  Transmission Date: 20061208
  Serious: Yes (Other)
  Sender: FDA-Public Use
  Company Number: 2006049664

PATIENT
  Age: 46 Year
  Sex: Male
  Weight: 111.1313 kg

DRUGS (4)
  1. LYRICA [Suspect]
     Indication: PAIN IN EXTREMITY
     Dosage: 150 MG (75 MG,2 IN 1 D),ORAL
     Route: 048
     Dates: start: 20060324
  2. SKELAXIN [Suspect]
     Indication: PAIN IN EXTREMITY
     Dosage: 3200 MG (800 MG,4 IN 1 D)
     Dates: start: 20060324, end: 20060327
  3. COLCHICUM JTL LIQ [Concomitant]
  4. SIMETHICONE (SIMETHICONE) [Concomitant]

REACTIONS (3)
  - DIARRHOEA [None]
  - INFREQUENT BOWEL MOVEMENTS [None]
  - PAIN [None]
